FAERS Safety Report 6332307-5 (Version None)
Quarter: 2009Q3

REPORT INFORMATION
  Report Type: 
  Country: None (occurrence: None)
  Receive Date: 20090828
  Receipt Date: 20090824
  Transmission Date: 20100115
  Serious: Yes (Life-Threatening, Hospitalization)
  Sender: FDA-Public Use
  Company Number: PHHY2009IE33764

PATIENT
  Sex: Male

DRUGS (7)
  1. CLOZARIL [Suspect]
     Indication: SCHIZOPHRENIA
     Dosage: 250 MG MANE AND 225 MG NOCTE
     Route: 048
     Dates: start: 20060410
  2. VENLAFAXINE HYDROCHLORIDE [Concomitant]
     Dosage: 15 MG DAILY
  3. AMISULPRIDE [Concomitant]
     Dosage: 100 MG, BID
     Route: 048
  4. LANSOPRAZOLE [Concomitant]
     Dosage: 30 MG MANE
  5. KWELLS [Concomitant]
     Dosage: 1 DF, BID
  6. DIAZEPAM [Concomitant]
     Dosage: 5 MG NOCTE
  7. FLUZEPAM [Concomitant]
     Dosage: 15 MG NOCTE

REACTIONS (2)
  - CEREBROVASCULAR ACCIDENT [None]
  - SYNCOPE [None]
